FAERS Safety Report 14241091 (Version 1)
Quarter: 2017Q4

REPORT INFORMATION
  Report Type: Spontaneous
  Country: US (occurrence: US)
  Receive Date: 20171130
  Receipt Date: 20171130
  Transmission Date: 20180321
  Serious: No
  Sender: FDA-Public Use
  Company Number: US-LEADIANT BIOSCIENCES INC-2017STPI000468

PATIENT
  Sex: Male

DRUGS (20)
  1. FISH OIL [Concomitant]
     Active Substance: FISH OIL
  2. NEXIUM [Concomitant]
     Active Substance: ESOMEPRAZOLE MAGNESIUM
  3. REMICADE [Concomitant]
     Active Substance: INFLIXIMAB
  4. VINCRISTINE [Concomitant]
     Active Substance: VINCRISTINE
  5. ZYRTEC [Concomitant]
     Active Substance: CETIRIZINE HYDROCHLORIDE
  6. FOLIC ACID. [Concomitant]
     Active Substance: FOLIC ACID
  7. KEPPRA [Concomitant]
     Active Substance: LEVETIRACETAM
  8. LISINOPRIL. [Concomitant]
     Active Substance: LISINOPRIL
  9. BIOTIN [Concomitant]
     Active Substance: BIOTIN
  10. VITAMIN B12 [Concomitant]
     Active Substance: CYANOCOBALAMIN
  11. MATULANE [Suspect]
     Active Substance: PROCARBAZINE HYDROCHLORIDE
     Indication: BRAIN NEOPLASM MALIGNANT
     Dosage: 150 MG, DAILY
     Route: 048
     Dates: start: 20170428
  12. LOMUSTINE. [Concomitant]
     Active Substance: LOMUSTINE
  13. INDOCIN [Concomitant]
     Active Substance: INDOMETHACIN
  14. OLANZAPINE. [Concomitant]
     Active Substance: OLANZAPINE
  15. VITAMINS WITH MINERALS [Concomitant]
     Active Substance: MINERALS\VITAMINS
  16. LIPITOR [Concomitant]
     Active Substance: ATORVASTATIN CALCIUM
  17. ZINC. [Concomitant]
     Active Substance: ZINC
  18. NOVOLOG [Concomitant]
     Active Substance: INSULIN ASPART
  19. ONDANSETRON [Concomitant]
     Active Substance: ONDANSETRON
  20. PENTASA [Concomitant]
     Active Substance: MESALAMINE

REACTIONS (1)
  - Fatigue [Not Recovered/Not Resolved]
